FAERS Safety Report 9381312 (Version 1)
Quarter: 2013Q3

REPORT INFORMATION
  Report Type: Spontaneous
  Country: US (occurrence: US)
  Receive Date: 20130703
  Receipt Date: 20130703
  Transmission Date: 20140515
  Serious: Yes (Hospitalization, Disabling)
  Sender: FDA-Public Use
  Company Number: US-SANOFI-AVENTIS-2013SA065952

PATIENT
  Sex: Female

DRUGS (2)
  1. LANTUS [Suspect]
     Indication: DIABETES MELLITUS
     Dosage: DOSAGE: 7 TO 9 UNITS
     Route: 058
  2. LEVEMIR [Concomitant]

REACTIONS (5)
  - Neck injury [Unknown]
  - Dysphagia [Unknown]
  - Speech disorder [Unknown]
  - Balance disorder [Unknown]
  - Disability [Unknown]
